FAERS Safety Report 10783681 (Version 2)
Quarter: 2015Q1

REPORT INFORMATION
  Report Type: Spontaneous
  Country: BR (occurrence: BR)
  Receive Date: 20150210
  Receipt Date: 20150223
  Transmission Date: 20150721
  Serious: Yes (Other)
  Sender: FDA-Public Use
  Company Number: BR-PFIZER INC-2014349918

PATIENT
  Age: 79 Year
  Sex: Female
  Weight: 74 kg

DRUGS (10)
  1. LIPITOR [Suspect]
     Active Substance: ATORVASTATIN CALCIUM
     Indication: BLOOD CHOLESTEROL ABNORMAL
     Dosage: 2 TABLETS OF 10MG (20 MG), 1X/DAY
     Route: 048
     Dates: start: 2008
  2. CLOPIDOGREL [Concomitant]
     Active Substance: CLOPIDOGREL BISULFATE
     Indication: CEREBROVASCULAR ACCIDENT PROPHYLAXIS
     Dosage: 74 MG, DAILY
     Dates: start: 2011
  3. GALVUS MET [Concomitant]
     Active Substance: METFORMIN HYDROCHLORIDE\VILDAGLIPTIN
     Indication: DIABETES MELLITUS
     Dosage: 1 TABLET (50/ 850), 2X/DAY
     Dates: start: 2009
  4. HIGROTON [Concomitant]
     Active Substance: CHLORTHALIDONE
     Indication: SWELLING
     Dosage: 1 DF, DAILY
     Dates: start: 2008
  5. LIPITOR [Suspect]
     Active Substance: ATORVASTATIN CALCIUM
     Indication: BLOOD TRIGLYCERIDES
  6. LIPITOR [Suspect]
     Active Substance: ATORVASTATIN CALCIUM
     Indication: CARDIAC DISORDER
  7. CONCOR [Concomitant]
     Active Substance: BISOPROLOL FUMARATE
     Indication: CARDIAC DISORDER
     Dosage: 1 TABLET OF 10MG, DAILY
     Dates: start: 2011
  8. DIOSMIN [Concomitant]
     Active Substance: DIOSMIN
     Indication: SWELLING
     Dosage: 1 TABLET (450 /50 MG), DAILY
     Dates: start: 2004
  9. DIOVAN [Concomitant]
     Active Substance: VALSARTAN
     Indication: BLOOD PRESSURE
     Dosage: 1 TABLET, DAILY
     Dates: start: 2009
  10. PURAN [Concomitant]
     Active Substance: LEVOTHYROXINE SODIUM
     Indication: THYROID DISORDER
     Dosage: 25 MG, DAILY
     Dates: start: 2009

REACTIONS (7)
  - Infarction [Unknown]
  - Obesity [Unknown]
  - Vein disorder [Not Recovered/Not Resolved]
  - Malaise [Not Recovered/Not Resolved]
  - Osteoarthritis [Not Recovered/Not Resolved]
  - Arthritis [Not Recovered/Not Resolved]
  - Gait disturbance [Not Recovered/Not Resolved]

NARRATIVE: CASE EVENT DATE: 2009
